FAERS Safety Report 6639732-3 (Version None)
Quarter: 2010Q1

REPORT INFORMATION
  Report Type: 
  Country: None (occurrence: None)
  Receive Date: 20100315
  Receipt Date: 20100218
  Transmission Date: 20100710
  Serious: Yes (Death, Hospitalization, Other)
  Sender: FDA-Public Use
  Company Number: 513764

PATIENT
  Age: 45 Year
  Sex: Female

DRUGS (9)
  1. CYTARABINE [Suspect]
     Indication: ACUTE MYELOID LEUKAEMIA
     Dosage: 1 MG/M2, INTRAVENOUS; 2 MG/M2; INTRAVENOUS; INTRAVENOUS
     Route: 042
     Dates: start: 20090912, end: 20090924
  2. CLOFARABINE [Suspect]
     Indication: ACUTE MYELOID LEUKAEMIA
     Dosage: 40 MG/M2;
     Dates: start: 20090921, end: 20090924
  3. FLUDARABINE PHOSPHATE [Suspect]
     Indication: ACUTE MYELOID LEUKAEMIA
     Dosage: 30 MG/M2; INTRAVENOUS
     Route: 042
  4. MYLOTARG [Suspect]
     Indication: ACUTE MYELOID LEUKAEMIA
     Dosage: 6 MG/M2; INTRAVENOUS
     Route: 042
     Dates: start: 20090921, end: 20090921
  5. NEUPOGEN [Suspect]
     Indication: ACUTE MYELOID LEUKAEMIA
     Dosage: SUBCUTANEOUS
     Route: 058
  6. ZAVEDOS [Suspect]
     Indication: ACUTE MYELOID LEUKAEMIA
     Dosage: 10 MG/M2, INTRAVENOUS
     Route: 042
  7. AMBISOME [Concomitant]
  8. RASBURICASE [Concomitant]
  9. VALTREX [Concomitant]

REACTIONS (8)
  - DYSPNOEA [None]
  - METABOLIC ACIDOSIS [None]
  - MULTI-ORGAN FAILURE [None]
  - PERICARDITIS [None]
  - RENAL FAILURE ACUTE [None]
  - RENAL IMPAIRMENT [None]
  - RESPIRATORY DISORDER [None]
  - SEPTIC SHOCK [None]
